FAERS Safety Report 8455530-2 (Version None)
Quarter: 2012Q2

REPORT INFORMATION
  Report Type: 
  Country: None (occurrence: None)
  Receive Date: 20120621
  Receipt Date: 20120618
  Transmission Date: 20120825
  Serious: Yes (Hospitalization)
  Sender: FDA-Public Use
  Company Number: FR-PFIZER INC-2012124281

PATIENT
  Age: 90 Year
  Sex: Male

DRUGS (14)
  1. PROSCAR [Concomitant]
  2. SYMBICORT [Concomitant]
  3. PLAVIX [Concomitant]
  4. ASPIRIN [Concomitant]
  5. HYPERIUM [Concomitant]
  6. DUPHALAC [Concomitant]
  7. LASIX [Concomitant]
  8. AMLODIPINE BESYLATE [Suspect]
     Dosage: 1 DF, 1X/DAY
     Route: 048
     Dates: start: 20120227, end: 20120414
  9. OMEPRAZOLE [Concomitant]
  10. XYZAL [Concomitant]
  11. POLARAMINE [Concomitant]
  12. PRAVASTATIN [Concomitant]
  13. LEXOMIL [Concomitant]
  14. NICARDIPINE HYDROCHLORIDE [Suspect]
     Dosage: 100 MG, 1X/DAY
     Route: 048
     Dates: start: 20110509, end: 20120227

REACTIONS (1)
  - ECZEMA [None]
